FAERS Safety Report 26109506 (Version 3)
Quarter: 2025Q4

REPORT INFORMATION
  Report Type: Report from Study
  Country: US (occurrence: US)
  Receive Date: 20251201
  Receipt Date: 20251216
  Transmission Date: 20260118
  Serious: No
  Sender: PFIZER
  Company Number: US-PFIZER INC-PV202200072982

PATIENT
  Age: 68 Year
  Sex: Female

DRUGS (1)
  1. XELJANZ XR [Suspect]
     Active Substance: TOFACITINIB CITRATE
     Indication: Rheumatoid arthritis
     Dosage: 11 MG, (TAKE 1 TABLET EVERY DAY)
     Route: 048

REACTIONS (4)
  - Gait disturbance [Unknown]
  - Hypertransaminasaemia [Unknown]
  - Asthenia [Unknown]
  - Anaemia [Unknown]
